FAERS Safety Report 14943890 (Version 1)
Quarter: 2018Q2

REPORT INFORMATION
  Report Type: Spontaneous
  Country: BE (occurrence: BE)
  Receive Date: 20180528
  Receipt Date: 20180528
  Transmission Date: 20180711
  Serious: Yes (Other)
  Sender: FDA-Public Use
  Company Number: BE-009507513-1804BEL006048

PATIENT
  Age: 77 Year
  Sex: Female
  Weight: 54 kg

DRUGS (2)
  1. SIMVASTATIN. [Suspect]
     Active Substance: SIMVASTATIN
     Indication: HYPERCHOLESTEROLAEMIA
     Dosage: UNK
  2. IRESSA [Interacting]
     Active Substance: GEFITINIB
     Indication: LUNG NEOPLASM MALIGNANT
     Dosage: 250 MG, QD
     Route: 048
     Dates: start: 20180309, end: 20180322

REACTIONS (2)
  - Drug interaction [Recovered/Resolved]
  - Rhabdomyolysis [Recovered/Resolved]

NARRATIVE: CASE EVENT DATE: 20180309
